FAERS Safety Report 12282135 (Version 1)
Quarter: 2016Q2

REPORT INFORMATION
  Report Type: Spontaneous
  Country: US (occurrence: US)
  Receive Date: 20160419
  Receipt Date: 20160419
  Transmission Date: 20160815
  Serious: No
  Sender: FDA-Public Use
  Company Number: US-BAYER-2016-069550

PATIENT
  Age: 82 Year
  Sex: Male
  Weight: 85.26 kg

DRUGS (2)
  1. MIRALAX [Suspect]
     Active Substance: POLYETHYLENE GLYCOL 3350
     Indication: COLONOSCOPY
     Dosage: UNK UNK, QD
     Route: 048
  2. MIRALAX [Suspect]
     Active Substance: POLYETHYLENE GLYCOL 3350
     Indication: COLONOSCOPY
     Dosage: UNK UNK, QD
     Dates: start: 201603, end: 201603

REACTIONS (3)
  - Circumstance or information capable of leading to medication error [None]
  - Expired product administered [None]
  - Off label use [None]

NARRATIVE: CASE EVENT DATE: 201603
